FAERS Safety Report 12798913 (Version 1)
Quarter: 2016Q3

REPORT INFORMATION
  Report Type: Spontaneous
  Country: US (occurrence: US)
  Receive Date: 20160930
  Receipt Date: 20160930
  Transmission Date: 20161109
  Serious: No
  Sender: FDA-Public Use
  Company Number: None

PATIENT
  Age: 43 Year
  Sex: Female

DRUGS (5)
  1. LEFLUNOMIDE. [Suspect]
     Active Substance: LEFLUNOMIDE
     Indication: RHEUMATOID ARTHRITIS
     Route: 048
     Dates: start: 20150918
  2. PLAQUENIL [Suspect]
     Active Substance: HYDROXYCHLOROQUINE SULFATE
     Dosage: FILLED AT DIFFERENT PHARMACY
  3. LEXAPRO [Concomitant]
     Active Substance: ESCITALOPRAM OXALATE
  4. DICLOFENAC [Concomitant]
     Active Substance: DICLOFENAC
  5. NORCO [Concomitant]
     Active Substance: ACETAMINOPHEN\HYDROCODONE BITARTRATE

REACTIONS (9)
  - Connective tissue disorder [None]
  - Contusion [None]
  - Back pain [None]
  - Anger [None]
  - Anxiety [None]
  - Hot flush [None]
  - Muscle tone disorder [None]
  - Muscular weakness [None]
  - Neck pain [None]

NARRATIVE: CASE EVENT DATE: 20160912
